FAERS Safety Report 17513661 (Version 2)
Quarter: 2023Q2

REPORT INFORMATION
  Report Type: Report from Study
  Country: DE (occurrence: DE)
  Receive Date: 20200308
  Receipt Date: 20230613
  Transmission Date: 20230722
  Serious: Yes (Other)
  Sender: FDA-Public Use
  Company Number: DE-BIOGEN-2020BI00846072

PATIENT
  Age: 26 Year
  Sex: Female

DRUGS (1)
  1. TECFIDERA [Suspect]
     Active Substance: DIMETHYL FUMARATE
     Indication: Multiple sclerosis
     Route: 050
     Dates: start: 20190418, end: 20230201

REACTIONS (2)
  - Deafness unilateral [Not Recovered/Not Resolved]
  - VIIIth nerve injury [Not Recovered/Not Resolved]

NARRATIVE: CASE EVENT DATE: 20200101
